FAERS Safety Report 18937336 (Version 6)
Quarter: 2021Q2

REPORT INFORMATION
  Report Type: Report from Study
  Country: MY (occurrence: MY)
  Receive Date: 20210225
  Receipt Date: 20210611
  Transmission Date: 20210717
  Serious: Yes (Death, Hospitalization)
  Sender: FDA-Public Use
  Company Number: MY-BAYER-2020-136007

PATIENT
  Sex: Female

DRUGS (80)
  1. COPANLISIB. [Suspect]
     Active Substance: COPANLISIB
     Indication: B-CELL LYMPHOMA
     Dosage: 45 MG, ONCE
     Route: 042
     Dates: start: 20181213, end: 20181213
  2. COPANLISIB. [Suspect]
     Active Substance: COPANLISIB
     Indication: B-CELL LYMPHOMA
     Dosage: 30 MG, OW, 3 WEEKS ON/1 WEEK OFF
     Route: 042
     Dates: start: 20200327, end: 20200409
  3. COPANLISIB. [Suspect]
     Active Substance: COPANLISIB
     Indication: B-CELL LYMPHOMA
     Dosage: 30 MG, ONCE
     Route: 042
     Dates: start: 20200723, end: 20200723
  4. COPANLISIB. [Suspect]
     Active Substance: COPANLISIB
     Indication: B-CELL LYMPHOMA
     Dosage: 30 MG, OW, 3 WEEKS ON/1 WEEK OFF
     Route: 042
     Dates: start: 20201022, end: 20201105
  5. PROPANOLOL [PROPRANOLOL] [Concomitant]
     Active Substance: PROPRANOLOL HYDROCHLORIDE
     Indication: HYPERTENSION
     Dosage: 20 MG, BID
     Route: 048
     Dates: start: 202007
  6. CAPTOPRIL. [Concomitant]
     Active Substance: CAPTOPRIL
     Indication: HYPERTENSION
     Dosage: 12.5 MG, ONCE
     Route: 048
     Dates: start: 20181128, end: 20181128
  7. LASIX [Concomitant]
     Active Substance: FUROSEMIDE
     Indication: HYPERTENSION
     Dosage: 20 MG, ONCE
     Route: 042
     Dates: start: 20181128, end: 20181128
  8. ISOKET [Concomitant]
     Active Substance: ISOSORBIDE DINITRATE
     Indication: HYPERTENSION
     Dosage: 1 ML/H
     Route: 042
     Dates: start: 20181206, end: 20181206
  9. CIPROFLOXACIN. [Concomitant]
     Active Substance: CIPROFLOXACIN
     Indication: GASTROENTERITIS
     Dosage: 400 MG, BID
     Route: 042
     Dates: start: 20190223, end: 20190224
  10. CEFUROXIME. [Concomitant]
     Active Substance: CEFUROXIME
     Indication: PNEUMONIA
     Dosage: 500 MG, BID
     Route: 048
     Dates: start: 20200128, end: 20200201
  11. AZITHROMYCIN ANHYDROUS. [Concomitant]
     Active Substance: AZITHROMYCIN ANHYDROUS
     Indication: PNEUMONIA
     Dosage: 500 MG, QD
     Route: 048
     Dates: start: 20200128, end: 20200130
  12. COPANLISIB. [Suspect]
     Active Substance: COPANLISIB
     Indication: B-CELL LYMPHOMA
     Dosage: 30 MG, ONCE
     Route: 042
     Dates: start: 20190410, end: 20190410
  13. COPANLISIB. [Suspect]
     Active Substance: COPANLISIB
     Indication: B-CELL LYMPHOMA
     Dosage: 30 MG, OW, 3 WEEKS ON/1 WEEK OFF
     Route: 042
     Dates: start: 20191003, end: 20191017
  14. COPANLISIB. [Suspect]
     Active Substance: COPANLISIB
     Indication: B-CELL LYMPHOMA
     Dosage: 30 MG, OW, 3 WEEKS ON/1 WEEK OFF
     Route: 042
     Dates: start: 20191204, end: 20191219
  15. COPANLISIB. [Suspect]
     Active Substance: COPANLISIB
     Indication: B-CELL LYMPHOMA
     Dosage: 30 MG, ONCE
     Route: 042
     Dates: start: 20200220, end: 20200220
  16. COPANLISIB. [Suspect]
     Active Substance: COPANLISIB
     Indication: B-CELL LYMPHOMA
     Dosage: 30 MG, ONCE
     Route: 042
     Dates: start: 20200806, end: 20200806
  17. COPANLISIB. [Suspect]
     Active Substance: COPANLISIB
     Indication: B-CELL LYMPHOMA
     Dosage: 30 MG, ONCE
     Route: 042
     Dates: start: 20201124, end: 20201124
  18. RITUXIMAB. [Suspect]
     Active Substance: RITUXIMAB
     Indication: B-CELL LYMPHOMA
     Dosage: 578 MG, ONCE
     Route: 042
     Dates: start: 20190410, end: 20190410
  19. RITUXIMAB. [Suspect]
     Active Substance: RITUXIMAB
     Indication: B-CELL LYMPHOMA
     Dosage: 578 MG, ONCE
     Route: 042
     Dates: start: 20190807, end: 20190807
  20. PROPANOLOL [PROPRANOLOL] [Concomitant]
     Active Substance: PROPRANOLOL HYDROCHLORIDE
     Indication: HYPERTENSION
     Dosage: 20 MG, BID
     Route: 048
     Dates: start: 20181128, end: 20190220
  21. LEVOFLOXACIN. [Concomitant]
     Active Substance: LEVOFLOXACIN
     Indication: PNEUMONIA
     Dosage: 500 MG, QD
     Route: 048
     Dates: start: 20200205, end: 20200211
  22. CEFUROXIME. [Concomitant]
     Active Substance: CEFUROXIME
     Indication: COUGH
     Dosage: 500 MG, BID
     Route: 048
     Dates: start: 20200702, end: 20200705
  23. BENADRYL [Concomitant]
     Active Substance: DIPHENHYDRAMINE HYDROCHLORIDE
     Indication: PNEUMONIA
     Dosage: 15 ML, TID
     Route: 048
     Dates: start: 20200128, end: 20200203
  24. MEROPENEM. [Concomitant]
     Active Substance: MEROPENEM
     Indication: PNEUMONIA
     Dosage: 2 G STAT
     Route: 042
     Dates: start: 20200706, end: 20200706
  25. COPANLISIB. [Suspect]
     Active Substance: COPANLISIB
     Indication: B-CELL LYMPHOMA
     Dosage: 60 MG, ONCE
     Route: 042
     Dates: start: 20181206, end: 20181206
  26. COPANLISIB. [Suspect]
     Active Substance: COPANLISIB
     Indication: B-CELL LYMPHOMA
     Dosage: 30 MG, OW, 3 WEEKS ON/1 WEEK OFF
     Route: 042
     Dates: start: 20190903, end: 20190919
  27. RITUXIMAB. [Suspect]
     Active Substance: RITUXIMAB
     Indication: B-CELL LYMPHOMA
     Dosage: 596 MG, ONCE
     Route: 042
     Dates: start: 20190124, end: 20190124
  28. PROPANOLOL [PROPRANOLOL] [Concomitant]
     Active Substance: PROPRANOLOL HYDROCHLORIDE
     Indication: HYPERTENSION
     Dosage: 20 MG, QD
     Route: 048
     Dates: start: 2003, end: 20181128
  29. AMLODIPINE [Concomitant]
     Active Substance: AMLODIPINE BESYLATE
     Indication: HYPERTENSION
     Dosage: 5 MG, QD
     Route: 048
     Dates: start: 20181206, end: 20190218
  30. AMLODIPINE [Concomitant]
     Active Substance: AMLODIPINE BESYLATE
     Indication: HYPERTENSION
     Dosage: 5 MG, QD
     Route: 048
     Dates: start: 20190410
  31. AMLODIPINE [Concomitant]
     Active Substance: AMLODIPINE BESYLATE
     Indication: HYPERTENSION
     Dosage: 5 MG STAT
     Route: 048
     Dates: start: 20200722, end: 20200722
  32. TAMIFLU [Concomitant]
     Active Substance: OSELTAMIVIR PHOSPHATE
     Indication: PNEUMONIA
     Dosage: 75 MG, BID
     Route: 048
     Dates: start: 20200128, end: 20200201
  33. TAMIFLU [Concomitant]
     Active Substance: OSELTAMIVIR PHOSPHATE
     Indication: PNEUMONIA
     Dosage: 75 MG, QD
     Route: 048
     Dates: start: 20200706, end: 20200710
  34. CEFEPIME [Concomitant]
     Active Substance: CEFEPIME HYDROCHLORIDE
     Indication: PNEUMONIA
     Dosage: 2 G, QD
     Route: 042
     Dates: start: 20200705, end: 20200705
  35. CEFEPIME [Concomitant]
     Active Substance: CEFEPIME HYDROCHLORIDE
     Indication: PNEUMONIA
     Dosage: 1 G, TID
     Route: 042
     Dates: start: 20200705, end: 20200706
  36. COPANLISIB. [Suspect]
     Active Substance: COPANLISIB
     Indication: B-CELL LYMPHOMA
     Dosage: 45 MG, OW, 3 WEEKS ON/1 WEEK OFF
     Route: 042
     Dates: start: 20190124, end: 20190207
  37. COPANLISIB. [Suspect]
     Active Substance: COPANLISIB
     Indication: B-CELL LYMPHOMA
     Dosage: 30 MG, ONCE, 3 WEEKS ON/1 WEEK OFF
     Route: 042
     Dates: start: 20200103, end: 20200116
  38. COPANLISIB. [Suspect]
     Active Substance: COPANLISIB
     Indication: B-CELL LYMPHOMA
     Dosage: 30 MG, OW, 3 WEEKS ON/1 WEEK OFF
     Route: 042
     Dates: start: 20200422, end: 20200508
  39. RITUXIMAB. [Suspect]
     Active Substance: RITUXIMAB
     Indication: B-CELL LYMPHOMA
     Dosage: 608 MG, ONCE
     Route: 042
     Dates: start: 20181206, end: 20181206
  40. PROPANOLOL [PROPRANOLOL] [Concomitant]
     Active Substance: PROPRANOLOL HYDROCHLORIDE
     Indication: HYPERTENSION
     Dosage: 20 MG, QD
     Route: 048
     Dates: start: 20200712, end: 20200714
  41. LOMOTIL [LOPERAMIDE HYDROCHLORIDE] [Concomitant]
     Active Substance: LOPERAMIDE HYDROCHLORIDE
     Indication: GASTROENTERITIS
     Dosage: 2 MG, TID
     Route: 048
     Dates: start: 20190220, end: 20190220
  42. MEROPENEM. [Concomitant]
     Active Substance: MEROPENEM
     Indication: PNEUMONIA
     Dosage: 1 G, TID
     Route: 042
     Dates: start: 20200706, end: 20200707
  43. COPANLISIB. [Suspect]
     Active Substance: COPANLISIB
     Indication: B-CELL LYMPHOMA
     Dosage: 30 MG, OW, 3 WEEKS ON/1 WEEK OFF
     Route: 042
     Dates: start: 20190807, end: 20190822
  44. COPANLISIB. [Suspect]
     Active Substance: COPANLISIB
     Indication: B-CELL LYMPHOMA
     Dosage: 30 MG, OW, 3 WEEKS ON/1 WEEK OFF
     Route: 042
     Dates: start: 20191106, end: 20191121
  45. PROPANOLOL [PROPRANOLOL] [Concomitant]
     Active Substance: PROPRANOLOL HYDROCHLORIDE
     Indication: HYPERTENSION
     Dosage: 20 MG, ONCE
     Route: 048
     Dates: start: 20181128, end: 20181128
  46. SPIRONOLACTONE. [Concomitant]
     Active Substance: SPIRONOLACTONE
     Indication: HYPERTENSION
     Dosage: 25 MG, QD
     Route: 048
     Dates: start: 2003, end: 20181128
  47. SPIRONOLACTONE. [Concomitant]
     Active Substance: SPIRONOLACTONE
     Indication: HYPERTENSION
     Dosage: 25 MG, QD
     Route: 048
     Dates: start: 20190315
  48. CAPTOPRIL. [Concomitant]
     Active Substance: CAPTOPRIL
     Indication: HYPERTENSION
     Dosage: 25 MG, QD
     Route: 048
     Dates: start: 20181206, end: 20181206
  49. COPANLISIB. [Suspect]
     Active Substance: COPANLISIB
     Indication: B-CELL LYMPHOMA
     Dosage: 30 MG, ONCE
     Route: 042
     Dates: start: 20190315, end: 20190315
  50. COPANLISIB. [Suspect]
     Active Substance: COPANLISIB
     Indication: B-CELL LYMPHOMA
     Dosage: 30 MG, ONCE
     Route: 042
     Dates: start: 20190426, end: 20190426
  51. COPANLISIB. [Suspect]
     Active Substance: COPANLISIB
     Indication: B-CELL LYMPHOMA
     Dosage: 30 MG, OW, 3 WEEKS ON/1 WEEK OFF
     Route: 042
     Dates: start: 20190613, end: 20190627
  52. COPANLISIB. [Suspect]
     Active Substance: COPANLISIB
     Indication: B-CELL LYMPHOMA
     Dosage: 30 MG, ONCE
     Route: 042
     Dates: start: 20200206, end: 20200206
  53. COPANLISIB. [Suspect]
     Active Substance: COPANLISIB
     Indication: B-CELL LYMPHOMA
     Dosage: 30 MG, ONCE
     Route: 042
     Dates: start: 20201224, end: 20201224
  54. SPIRONOLACTONE. [Concomitant]
     Active Substance: SPIRONOLACTONE
     Indication: HYPERTENSION
     Dosage: 25 MG, QD
     Route: 048
     Dates: start: 20200714
  55. CIPROFLOXACIN. [Concomitant]
     Active Substance: CIPROFLOXACIN
     Indication: GASTROENTERITIS
     Dosage: 250 MG, BID
     Route: 048
     Dates: start: 20190225, end: 20190302
  56. LEVOFLOXACIN. [Concomitant]
     Active Substance: LEVOFLOXACIN
     Indication: PNEUMONIA
     Dosage: 500 MG, QD
     Route: 048
     Dates: start: 20200213, end: 20200219
  57. COPANLISIB. [Suspect]
     Active Substance: COPANLISIB
     Indication: B-CELL LYMPHOMA
     Dosage: 45 MG, OW, 3 WEEKS ON/1 WEEK OFF
     Route: 042
     Dates: start: 20181227, end: 20190110
  58. COPANLISIB. [Suspect]
     Active Substance: COPANLISIB
     Indication: B-CELL LYMPHOMA
     Dosage: 30 MG, OW, 3 WEEKS ON/1 WEEK OFF
     Route: 042
     Dates: start: 20190509, end: 20190523
  59. COPANLISIB. [Suspect]
     Active Substance: COPANLISIB
     Indication: B-CELL LYMPHOMA
     Dosage: 30 MG, OW, 3 WEEKS ON/1 WEEK OFF
     Route: 042
     Dates: start: 20200618, end: 20200625
  60. COPANLISIB. [Suspect]
     Active Substance: COPANLISIB
     Indication: B-CELL LYMPHOMA
     Dosage: 30 MG, ONCE
     Route: 042
     Dates: start: 20200924, end: 20200924
  61. COPANLISIB. [Suspect]
     Active Substance: COPANLISIB
     Indication: B-CELL LYMPHOMA
     Dosage: 30 MG, ONCE
     Route: 042
     Dates: start: 20201008, end: 20201008
  62. COPANLISIB. [Suspect]
     Active Substance: COPANLISIB
     Indication: B-CELL LYMPHOMA
     Dosage: 30 MG, ONCE
     Route: 042
     Dates: start: 20201203, end: 20201203
  63. RITUXIMAB. [Suspect]
     Active Substance: RITUXIMAB
     Indication: B-CELL LYMPHOMA
     Dosage: 608 MG, ONCE
     Route: 042
     Dates: start: 20181213, end: 20181213
  64. RITUXIMAB. [Suspect]
     Active Substance: RITUXIMAB
     Indication: B-CELL LYMPHOMA
     Dosage: 570 MG, ONCE
     Route: 042
     Dates: start: 20190613, end: 20190613
  65. PROPANOLOL [PROPRANOLOL] [Concomitant]
     Active Substance: PROPRANOLOL HYDROCHLORIDE
     Indication: HYPERTENSION
     Dosage: 20 MG, BID
     Route: 048
     Dates: start: 20190315
  66. SPIRONOLACTONE. [Concomitant]
     Active Substance: SPIRONOLACTONE
     Indication: HYPERTENSION
     Dosage: 20 MG, BID
     Route: 048
     Dates: start: 20181128, end: 20181128
  67. ISOKET [Concomitant]
     Active Substance: ISOSORBIDE DINITRATE
     Indication: HYPERTENSION
     Dosage: 0.5 ML/H
     Route: 042
     Dates: start: 20181206, end: 20181206
  68. AMLODIPINE [Concomitant]
     Active Substance: AMLODIPINE BESYLATE
     Indication: HYPERTENSION
     Dosage: 5 MG STAT 2 TIMES
     Route: 048
     Dates: start: 20181206, end: 20181206
  69. LOMOTIL [LOPERAMIDE HYDROCHLORIDE] [Concomitant]
     Active Substance: LOPERAMIDE HYDROCHLORIDE
     Indication: GASTROENTERITIS
     Dosage: 2 MG, Q4HR
     Route: 048
     Dates: start: 20190221, end: 20190221
  70. LOMOTIL [LOPERAMIDE HYDROCHLORIDE] [Concomitant]
     Active Substance: LOPERAMIDE HYDROCHLORIDE
     Indication: GASTROENTERITIS
     Dosage: 2 MG, TID
     Dates: start: 20190822, end: 20190822
  71. COPANLISIB. [Suspect]
     Active Substance: COPANLISIB
     Indication: B-CELL LYMPHOMA
     Dosage: 60 MG, ONCE
     Route: 042
     Dates: start: 20181128, end: 20181128
  72. COPANLISIB. [Suspect]
     Active Substance: COPANLISIB
     Indication: B-CELL LYMPHOMA
     Dosage: 30 MG, ONCE
     Route: 042
     Dates: start: 20190328, end: 20190328
  73. COPANLISIB. [Suspect]
     Active Substance: COPANLISIB
     Indication: B-CELL LYMPHOMA
     Dosage: 30 MG, OW, 3 WEEKS ON/1 WEEK OFF
     Route: 042
     Dates: start: 20190711, end: 20190725
  74. COPANLISIB. [Suspect]
     Active Substance: COPANLISIB
     Indication: B-CELL LYMPHOMA
     Dosage: 30 MG, OW, 3 WEEKS ON/1 WEEK OFF
     Route: 042
     Dates: start: 202005, end: 20200604
  75. COPANLISIB. [Suspect]
     Active Substance: COPANLISIB
     Indication: B-CELL LYMPHOMA
     Dosage: 30 MG, OW, 3 WEEKS ON/1 WEEK OFF
     Route: 042
     Dates: start: 20200825, end: 20200911
  76. RITUXIMAB. [Suspect]
     Active Substance: RITUXIMAB
     Indication: B-CELL LYMPHOMA
     Dosage: 608 MG, ONCE
     Route: 042
     Dates: start: 20181128, end: 20181128
  77. RITUXIMAB. [Suspect]
     Active Substance: RITUXIMAB
     Indication: B-CELL LYMPHOMA
     Dosage: 608 MG, ONCE
     Route: 042
     Dates: start: 20181220, end: 20181220
  78. SPIRONOLACTONE. [Concomitant]
     Active Substance: SPIRONOLACTONE
     Indication: HYPERTENSION
     Dosage: 50 MG, QD
     Route: 048
     Dates: start: 20181129, end: 20181206
  79. SPIRONOLACTONE. [Concomitant]
     Active Substance: SPIRONOLACTONE
     Indication: HYPERTENSION
     Dosage: 25 MG, QD
     Route: 048
     Dates: start: 20181207, end: 20190220
  80. ISOKET [Concomitant]
     Active Substance: ISOSORBIDE DINITRATE
     Indication: HYPERTENSION
     Dosage: 0.5 ML/H STAT
     Route: 042
     Dates: start: 20181128, end: 20181128

REACTIONS (7)
  - Pneumonia [Fatal]
  - Pneumonia klebsiella [Recovering/Resolving]
  - Febrile neutropenia [Unknown]
  - Pneumonia [Recovered/Resolved with Sequelae]
  - Neutropenic sepsis [Recovered/Resolved]
  - Anaemia [Recovered/Resolved]
  - Pneumonia [Recovering/Resolving]

NARRATIVE: CASE EVENT DATE: 20200705
